FAERS Safety Report 12478418 (Version 2)
Quarter: 2016Q3

REPORT INFORMATION
  Report Type: Spontaneous
  Country: US (occurrence: US)
  Receive Date: 20160618
  Receipt Date: 20160804
  Transmission Date: 20161109
  Serious: Yes (Other)
  Sender: FDA-Public Use
  Company Number: US-JNJFOC-20160609788

PATIENT
  Age: 59 Year
  Sex: Female

DRUGS (23)
  1. LISINOPRIL. [Concomitant]
     Active Substance: LISINOPRIL
     Indication: HYPERTENSION
     Route: 048
  2. THALOMID [Suspect]
     Active Substance: THALIDOMIDE
     Indication: CARCINOID TUMOUR OF THE STOMACH
     Route: 048
     Dates: start: 201502
  3. OMEPRAZOLE. [Concomitant]
     Active Substance: OMEPRAZOLE
     Route: 048
  4. RANITIDINE. [Concomitant]
     Active Substance: RANITIDINE
     Route: 065
  5. DEXAMETHASONE. [Concomitant]
     Active Substance: DEXAMETHASONE
     Route: 065
  6. AROMASIN [Concomitant]
     Active Substance: EXEMESTANE
     Route: 065
  7. LIPITOR [Concomitant]
     Active Substance: ATORVASTATIN CALCIUM
     Route: 065
  8. XARELTO [Suspect]
     Active Substance: RIVAROXABAN
     Indication: CEREBROVASCULAR ACCIDENT
     Route: 048
     Dates: start: 2015
  9. AMLODIPINE BESYLATE. [Concomitant]
     Active Substance: AMLODIPINE BESYLATE
     Route: 065
  10. LORATADINE. [Concomitant]
     Active Substance: LORATADINE
     Route: 065
  11. THALOMID [Suspect]
     Active Substance: THALIDOMIDE
     Indication: CARCINOID TUMOUR OF THE STOMACH
     Route: 048
     Dates: start: 201203
  12. THALOMID [Suspect]
     Active Substance: THALIDOMIDE
     Indication: CARCINOID TUMOUR OF THE STOMACH
     Dosage: 50 MG, 28 IN 28 DAYS
     Route: 048
     Dates: start: 201403
  13. COLCHICINE. [Concomitant]
     Active Substance: COLCHICINE
     Route: 065
  14. THALOMID [Suspect]
     Active Substance: THALIDOMIDE
     Indication: CARCINOID TUMOUR OF THE STOMACH
     Dosage: 26/ 26 DAYS
     Route: 048
     Dates: start: 201509
  15. THALOMID [Suspect]
     Active Substance: THALIDOMIDE
     Indication: CARCINOID TUMOUR OF THE STOMACH
     Dosage: 200 MG, 28 IN 28 DAYS
     Route: 048
     Dates: start: 201601
  16. ALLOPURINOL. [Concomitant]
     Active Substance: ALLOPURINOL
     Route: 065
  17. THALOMID [Suspect]
     Active Substance: THALIDOMIDE
     Indication: CARCINOID TUMOUR OF THE STOMACH
     Dosage: 200 MG, 28 IN 28 DAYS
     Route: 048
     Dates: start: 200510
  18. THALOMID [Suspect]
     Active Substance: THALIDOMIDE
     Indication: CARCINOID TUMOUR OF THE STOMACH
     Dosage: 200 MG, 28 IN 28 DAYS
     Route: 048
     Dates: start: 20101201
  19. ALFUZOSIN HCL [Concomitant]
     Active Substance: ALFUZOSIN HYDROCHLORIDE
     Route: 065
  20. SANDOSTATIN [Concomitant]
     Active Substance: OCTREOTIDE ACETATE
     Route: 065
  21. THALOMID [Suspect]
     Active Substance: THALIDOMIDE
     Indication: CARCINOID TUMOUR OF THE STOMACH
     Dosage: 200-50 MG, 1 IN 1 DAY
     Route: 048
     Dates: start: 201501
  22. ASPIRIN. [Suspect]
     Active Substance: ASPIRIN
     Indication: PRODUCT USED FOR UNKNOWN INDICATION
     Route: 065
  23. CLOTRIMAZOL [Concomitant]
     Active Substance: CLOTRIMAZOLE
     Route: 065

REACTIONS (2)
  - Haemorrhage [Unknown]
  - Arthritis [Unknown]

NARRATIVE: CASE EVENT DATE: 201503
